FAERS Safety Report 5974240-4 (Version None)
Quarter: 2008Q4

REPORT INFORMATION
  Report Type: 
  Country: None (occurrence: None)
  Receive Date: 20081128
  Receipt Date: 20081118
  Transmission Date: 20090506
  Serious: Yes (Disabling)
  Sender: FDA-Public Use
  Company Number: GXKR2008GB11049

PATIENT
  Age: 30 Year
  Sex: Female
  Weight: 64 kg

DRUGS (2)
  1. TRAMADOL HCL [Suspect]
     Indication: FIBROMYALGIA
     Dosage: 50 MG, ORAL
     Route: 048
     Dates: start: 20020101
  2. TRAMADOL HCL [Suspect]
     Indication: PAIN
     Dosage: 50 MG, ORAL
     Route: 048
     Dates: start: 20020101

REACTIONS (1)
  - DYSARTHRIA [None]
